FAERS Safety Report 17423111 (Version 1)
Quarter: 2020Q1

REPORT INFORMATION
  Report Type: Spontaneous
  Country: US (occurrence: US)
  Receive Date: 20200131
  Receipt Date: 20200131
  Transmission Date: 20200409
  Serious: No
  Sender: FDA-Public Use
  Company Number: None

PATIENT
  Sex: Male

DRUGS (1)
  1. CAPECITABINE 500MG NOVADOZ [Suspect]
     Active Substance: CAPECITABINE
     Indication: RECTAL CANCER
     Dosage: ?          OTHER DOSE:2000MG/1500MG;OTHER FREQUENCY:AM/PM;?
     Route: 048
     Dates: start: 20191230

REACTIONS (1)
  - Skin hyperpigmentation [None]
